FAERS Safety Report 5927391-4 (Version None)
Quarter: 2008Q4

REPORT INFORMATION
  Report Type: 
  Country: None (occurrence: None)
  Receive Date: 20081022
  Receipt Date: 20081022
  Transmission Date: 20090506
  Serious: Yes (Other)
  Sender: FDA-Public Use
  Company Number: None

PATIENT
  Age: 40 Year
  Sex: Female

DRUGS (3)
  1. EFFEXOR XR [Suspect]
     Indication: GENERALISED ANXIETY DISORDER
     Dosage: 150 MG PO
     Route: 048
     Dates: start: 20070308, end: 20081008
  2. FEXOFENADINE [Concomitant]
  3. GUAIFENEX [Concomitant]

REACTIONS (1)
  - URTICARIA [None]
